FAERS Safety Report 9455412 (Version 3)
Quarter: 2013Q4

REPORT INFORMATION
  Report Type: Report from Study
  Country: US (occurrence: US)
  Receive Date: 20130813
  Receipt Date: 20131021
  Transmission Date: 20140711
  Serious: Yes (Hospitalization)
  Sender: FDA-Public Use
  Company Number: US-UCBSA-095232

PATIENT
  Age: 53 Year
  Sex: Male
  Weight: 132.26 kg

DRUGS (11)
  1. CIMZIA [Suspect]
     Indication: CROHN^S DISEASE
     Route: 058
     Dates: start: 20121210, end: 20130311
  2. BUDESONIDE [Concomitant]
     Indication: CROHN^S DISEASE
     Dates: start: 20130115
  3. VITAMIN C [Concomitant]
     Dosage: DAILY
  4. ATENOLOL [Concomitant]
  5. VICODIN [Concomitant]
  6. CELECOXIB [Concomitant]
  7. VITAMIN D [Concomitant]
     Dosage: 10000 IU EVERY DAY
  8. LISINOPRIL [Concomitant]
     Dosage: 40 MG AT BEDTIME
  9. FISH OIL [Concomitant]
  10. VITAMIN E [Concomitant]
     Dosage: 1000 IU DAILY
  11. NATALIZUMAB [Concomitant]
     Dates: start: 20130410

REACTIONS (1)
  - Tooth infection [Recovered/Resolved]
